FAERS Safety Report 4520907-4 (Version None)
Quarter: 2004Q4

REPORT INFORMATION
  Report Type: 
  Country: None (occurrence: None)
  Receive Date: 20041208
  Receipt Date: 20041014
  Transmission Date: 20050328
  Serious: Yes (Life-Threatening, Hospitalization, Disabling)
  Sender: FDA-Public Use
  Company Number: 200413212JP

PATIENT
  Age: 34 Year
  Sex: Female
  Weight: 50 kg

DRUGS (3)
  1. TAXOTERE [Suspect]
     Indication: ADENOCARCINOMA
     Route: 041
     Dates: start: 20040824, end: 20040914
  2. PARAPLATIN [Suspect]
     Indication: ADENOCARCINOMA
     Route: 041
     Dates: start: 20040824, end: 20040914
  3. STARSIS [Concomitant]
     Indication: DIABETES MELLITUS
     Route: 048
     Dates: start: 20040902, end: 20041005

REACTIONS (3)
  - HYPERCOAGULATION [None]
  - LABORATORY TEST ABNORMAL [None]
  - PULMONARY ARTERY THROMBOSIS [None]
